FAERS Safety Report 4421361-3 (Version None)
Quarter: 2004Q3

REPORT INFORMATION
  Report Type: 
  Country: None (occurrence: None)
  Receive Date: 20040707
  Receipt Date: 20040419
  Transmission Date: 20050211
  Serious: Yes (Other)
  Sender: FDA-Public Use
  Company Number: 351963

PATIENT
  Age: 38 Year
  Sex: Male
  Weight: 77 kg

DRUGS (27)
  1. FUZEON [Suspect]
     Dosage: SUBCUTANEOUS
     Route: 058
     Dates: start: 20031117
  2. PYRIDOXINE HCL [Concomitant]
  3. TRIMETHOPRIM/SULFMETHOXAZOLE DS (SULFAMETHOXAZOLE/TRIMETHOPRMI) [Concomitant]
  4. ACETAMINOPHEN [Concomitant]
  5. ALBUTEROL [Concomitant]
  6. DIAZEPAM [Concomitant]
  7. GABAPENTIN [Concomitant]
  8. GUAIFENESIN (GUAIFENESIN) [Concomitant]
  9. HYDROCODONE/ACETAMINOPHEN (ACETAMINOPHEN/HYDROCODONE BITARTRATE) [Concomitant]
  10. TRAZODONE HCL [Concomitant]
  11. LIDOCAINE [Concomitant]
  12. PROCHLORPERAZINE [Concomitant]
  13. DIPHENHYDRAMINE HCL [Concomitant]
  14. ATAZANAVIR (ATAZANAVIR) [Concomitant]
  15. INDINAVIR (INDINAVIR) [Concomitant]
  16. NEVIRAPINE (NEVIRAPINE) [Concomitant]
  17. RITONAVIR (RITONAVIR) [Concomitant]
  18. LAMIVUDINE/ZIDOVUDINE(LAMIVUDINE/ZIDOVUDINE) [Concomitant]
  19. ASCORBIC ACID [Concomitant]
  20. PSEUDOEPHEDINRE (PSEUDOEPHEDRINE HYDROCHLORIDE) [Concomitant]
  21. HYDROCORTISONE [Concomitant]
  22. OSELTAMIVIR (OSELTAMIVIR) [Concomitant]
  23. TRIAMCINOLONE [Concomitant]
  24. AMPRENAVIR (AMPRENAVIR) [Concomitant]
  25. DIDANOSINE (DIDANOSINE) [Concomitant]
  26. LAMIVUDINE (LAMIVUDINE) [Concomitant]
  27. TENOFOVIR DISOPROXIL FUMARATE (TENOFOVIR) [Concomitant]

REACTIONS (4)
  - INJECTION SITE ERYTHEMA [None]
  - INJECTION SITE REACTION [None]
  - INJECTION SITE SWELLING [None]
  - SKIN NODULE [None]
